FAERS Safety Report 7372526-2 (Version None)
Quarter: 2011Q1

REPORT INFORMATION
  Report Type: 
  Country: None (occurrence: None)
  Receive Date: 20110316
  Receipt Date: 20110303
  Transmission Date: 20110831
  Serious: Yes (Hospitalization, Other)
  Sender: FDA-Public Use
  Company Number: 028922

PATIENT
  Age: 43 Year
  Sex: Female
  Weight: 60 kg

DRUGS (7)
  1. BACLOFEN [Concomitant]
  2. LEVETIRACETAM [Suspect]
     Indication: PARTIAL SEIZURES
     Dosage: (ORAL) ; (ORAL)
     Route: 048
     Dates: start: 20110116
  3. LEVETIRACETAM [Suspect]
     Indication: PARTIAL SEIZURES
     Dosage: (ORAL) ; (ORAL)
     Route: 048
     Dates: start: 20090922, end: 20110120
  4. TRILEPTAL [Suspect]
     Indication: PARTIAL SEIZURES
     Dosage: (1200 MG QD) ; (900 MG QD)
     Dates: start: 20110128
  5. TRILEPTAL [Suspect]
     Indication: PARTIAL SEIZURES
     Dosage: (1200 MG QD) ; (900 MG QD)
     Dates: start: 20040614, end: 20110127
  6. PROPOXYPHENE HCL AND ACETAMINOPHEN [Concomitant]
  7. DEXTROPROPOXYPHENE HCL W/PARACETAMOL [Concomitant]

REACTIONS (5)
  - ABDOMINAL PAIN UPPER [None]
  - DEHYDRATION [None]
  - THROMBOCYTOPENIA [None]
  - HYPONATRAEMIA [None]
  - TONSILLITIS [None]
